FAERS Safety Report 10875390 (Version 2)
Quarter: 2015Q1

REPORT INFORMATION
  Report Type: Spontaneous
  Country: FR (occurrence: FR)
  Receive Date: 20150227
  Receipt Date: 20150306
  Transmission Date: 20150721
  Serious: Yes (Hospitalization, Other)
  Sender: FDA-Public Use
  Company Number: FR-009507513-1502FRA009218

PATIENT
  Age: 65 Year
  Sex: Female

DRUGS (3)
  1. KEPPRA [Suspect]
     Active Substance: LEVETIRACETAM
     Dosage: FREQUENCY BID (TOTAL DAILY DOSE 1000MG)
     Route: 048
     Dates: end: 201502
  2. TEMODAL [Suspect]
     Active Substance: TEMOZOLOMIDE
     Indication: GLIOBLASTOMA
     Dosage: 130 MG, QD
     Route: 048
     Dates: start: 20140116, end: 20150112
  3. AVASTIN [Suspect]
     Active Substance: BEVACIZUMAB
     Dosage: 10 MG/KG, EVERY 15 DAYS
     Route: 042
     Dates: start: 20141223, end: 20150106

REACTIONS (2)
  - Aplasia [Not Recovered/Not Resolved]
  - Thrombocytopenia [Not Recovered/Not Resolved]

NARRATIVE: CASE EVENT DATE: 20150112
